FAERS Safety Report 6453284-2 (Version None)
Quarter: 2009Q4

REPORT INFORMATION
  Report Type: 
  Country: None (occurrence: None)
  Receive Date: 20091124
  Receipt Date: 20091113
  Transmission Date: 20100525
  Serious: Yes (Hospitalization)
  Sender: FDA-Public Use
  Company Number: FR-AMGEN-US345430

PATIENT
  Sex: Female

DRUGS (3)
  1. ENBREL [Suspect]
     Indication: RHEUMATOID ARTHRITIS
     Dosage: 50 MG TOTAL WEEKLY
     Route: 058
     Dates: start: 20081127, end: 20090401
  2. PREDNISONE [Concomitant]
     Indication: RHEUMATOID ARTHRITIS
     Dosage: 5 TO 10 MG TOTAL DAILY
     Route: 048
     Dates: start: 20060101, end: 20090401
  3. ARAVA [Concomitant]
     Indication: RHEUMATOID ARTHRITIS
     Dosage: 20 MG TOTAL DAILY
     Route: 048
     Dates: start: 20060101, end: 20090401

REACTIONS (5)
  - B-CELL LYMPHOMA [None]
  - CONDITION AGGRAVATED [None]
  - CUTANEOUS LUPUS ERYTHEMATOSUS [None]
  - MYELOFIBROSIS [None]
  - RHEUMATOID ARTHRITIS [None]
